FAERS Safety Report 5272817-5 (Version None)
Quarter: 2007Q1

REPORT INFORMATION
  Report Type: 
  Country: None (occurrence: None)
  Receive Date: 20061219
  Receipt Date: 20060821
  Transmission Date: 20070707
  Serious: Yes (Disabling)
  Sender: FDA-Public Use
  Company Number: US-JNJFOC-200608051525

PATIENT
  Age: 36 Year
  Sex: Female

DRUGS (1)
  1. ORTHO EVRA [Suspect]
     Indication: CONTRACEPTION
     Dosage: APPROX 2-3 MONTHS DURATION OF DRUG USE
     Dates: start: 20031201

REACTIONS (1)
  - DEEP VEIN THROMBOSIS [None]
